FAERS Safety Report 10092439 (Version 1)
Quarter: 2014Q2

REPORT INFORMATION
  Report Type: Spontaneous
  Country: US (occurrence: US)
  Receive Date: 20140421
  Receipt Date: 20140421
  Transmission Date: 20141212
  Serious: No
  Sender: FDA-Public Use
  Company Number: US-SANOFI-AVENTIS-2013SA050216

PATIENT
  Age: 65 Year
  Sex: Female

DRUGS (6)
  1. ALLEGRA [Suspect]
     Indication: DYSPHONIA
     Route: 048
     Dates: start: 20130514
  2. ALLEGRA [Suspect]
     Indication: THROAT IRRITATION
     Route: 048
     Dates: start: 20130514
  3. TYLENOL [Concomitant]
     Route: 065
     Dates: start: 20130514
  4. CLONAZEPAM [Concomitant]
     Indication: ANXIETY
     Route: 065
  5. ANTIHYPERTENSIVES [Concomitant]
     Route: 065
  6. COUGH AND COLD PREPARATIONS [Concomitant]
     Route: 065

REACTIONS (1)
  - Abdominal pain upper [Not Recovered/Not Resolved]
